FAERS Safety Report 14969492 (Version 1)
Quarter: 2018Q2

REPORT INFORMATION
  Report Type: Spontaneous
  Country: US (occurrence: US)
  Receive Date: 20180604
  Receipt Date: 20180604
  Transmission Date: 20180711
  Serious: No
  Sender: FDA-Public Use
  Company Number: US-TEVA-2018-US-899501

PATIENT
  Sex: Female

DRUGS (1)
  1. PROPRANOLOL [Suspect]
     Active Substance: PROPRANOLOL HYDROCHLORIDE
     Indication: HYPERTENSION
     Route: 065
     Dates: start: 2013

REACTIONS (3)
  - Asthenia [Unknown]
  - Hypotension [Unknown]
  - Glucose tolerance impaired [Unknown]

NARRATIVE: CASE EVENT DATE: 2013
